FAERS Safety Report 6509456-1 (Version None)
Quarter: 2009Q4

REPORT INFORMATION
  Report Type: 
  Country: None (occurrence: None)
  Receive Date: 20091217
  Receipt Date: 20090901
  Transmission Date: 20100525
  Serious: Yes (Hospitalization, Other)
  Sender: FDA-Public Use
  Company Number: 001724

PATIENT
  Age: 58 Year
  Sex: Male

DRUGS (2)
  1. OMEPRAZOLE [Suspect]
     Indication: ABDOMINAL DISCOMFORT
     Dosage: 20 MG, 20 MG BID
     Dates: start: 20000101, end: 20000101
  2. OMEPRAZOLE [Suspect]
     Indication: ABDOMINAL DISCOMFORT
     Dosage: 20 MG, 20 MG BID
     Dates: start: 20040301

REACTIONS (10)
  - ABDOMINAL PAIN UPPER [None]
  - CONSTIPATION [None]
  - GASTRINOMA MALIGNANT [None]
  - GASTROINTESTINAL SOUNDS ABNORMAL [None]
  - HAEMANGIOMA OF LIVER [None]
  - LYMPHADENOPATHY [None]
  - METASTASES TO LIVER [None]
  - OESOPHAGITIS [None]
  - PANCREATIC NEUROENDOCRINE TUMOUR [None]
  - RETCHING [None]
